FAERS Safety Report 14659911 (Version 1)
Quarter: 2018Q1

REPORT INFORMATION
  Report Type: Spontaneous
  Country: ES (occurrence: ES)
  Receive Date: 20180320
  Receipt Date: 20180320
  Transmission Date: 20180509
  Serious: Yes (Other)
  Sender: FDA-Public Use
  Company Number: ES-MYLANLABS-2018M1017419

PATIENT
  Age: 19 Year
  Sex: Male
  Weight: 55 kg

DRUGS (1)
  1. ISDIBEN [Suspect]
     Active Substance: ISOTRETINOIN
     Indication: ACNE
     Dosage: 40 MG, QD
     Route: 048
     Dates: start: 20171102, end: 20180104

REACTIONS (1)
  - Dermatitis infected [Recovering/Resolving]

NARRATIVE: CASE EVENT DATE: 20171201
